FAERS Safety Report 13103790 (Version 1)
Quarter: 2017Q1

REPORT INFORMATION
  Report Type: Spontaneous
  Country: FR (occurrence: FR)
  Receive Date: 20170111
  Receipt Date: 20170111
  Transmission Date: 20170428
  Serious: Yes (Other)
  Sender: FDA-Public Use
  Company Number: FR-ASTRAZENECA-2017SE01779

PATIENT
  Age: 761 Month
  Sex: Female

DRUGS (3)
  1. PYOSTACINE [Suspect]
     Active Substance: PRISTINAMYCIN
     Dosage: 500.0MG UNKNOWN
     Route: 048
     Dates: start: 20090408
  2. CRESTOR [Suspect]
     Active Substance: ROSUVASTATIN CALCIUM
     Route: 048
     Dates: start: 20040701
  3. KARDEGIC [Concomitant]
     Active Substance: ASPIRIN LYSINE

REACTIONS (5)
  - Vertigo [Unknown]
  - Lupus-like syndrome [Recovered/Resolved]
  - Dyspnoea [Unknown]
  - Arrhythmia [Unknown]
  - Localised infection [Unknown]

NARRATIVE: CASE EVENT DATE: 200912
